FAERS Safety Report 11685721 (Version 1)
Quarter: 2015Q4

REPORT INFORMATION
  Report Type: Report from Study
  Country: DE (occurrence: DE)
  Receive Date: 20151030
  Receipt Date: 20151030
  Transmission Date: 20160304
  Serious: Yes (Hospitalization)
  Sender: FDA-Public Use
  Company Number: PHHO2008DE018272

PATIENT
  Sex: Female
  Weight: 92 kg

DRUGS (5)
  1. TOPOTECAN HYDROCHLORIDE. [Suspect]
     Active Substance: TOPOTECAN HYDROCHLORIDE
     Dosage: 1.46 MG, CYCLIC
     Route: 042
     Dates: start: 20001020, end: 20081022
  2. TOPOTECAN HYDROCHLORIDE. [Suspect]
     Active Substance: TOPOTECAN HYDROCHLORIDE
     Indication: NEOPLASM MALIGNANT
     Dosage: 1.46 MG, CYCLIC
     Route: 042
     Dates: start: 20080908, end: 20080910
  3. CARBOPLATIN. [Suspect]
     Active Substance: CARBOPLATIN
     Indication: NEOPLASM MALIGNANT
     Dosage: 744.65 MG, QW3
     Route: 042
     Dates: start: 20080910
  4. TOPOTECAN HYDROCHLORIDE. [Suspect]
     Active Substance: TOPOTECAN HYDROCHLORIDE
     Dosage: 1.46 MG, CYCLIC
     Route: 042
     Dates: start: 20080929, end: 20081001
  5. CARBOPLATIN. [Suspect]
     Active Substance: CARBOPLATIN
     Dosage: 744.65 MG, QW3
     Route: 042
     Dates: start: 20081022

REACTIONS (2)
  - Dyspnoea [Recovered/Resolved]
  - Flushing [Recovered/Resolved]

NARRATIVE: CASE EVENT DATE: 20081022
